FAERS Safety Report 7610281-9 (Version None)
Quarter: 2011Q3

REPORT INFORMATION
  Report Type: 
  Country: None (occurrence: None)
  Receive Date: 20110706
  Receipt Date: 20110624
  Transmission Date: 20111222
  Serious: Yes (Disabling)
  Sender: FDA-Public Use
  Company Number: GER/UKI/11/0018813

PATIENT
  Sex: Male

DRUGS (2)
  1. ESCITALOPRAM [Concomitant]
  2. DONEPEZIL HCL [Suspect]
     Indication: PRODUCT USED FOR UNKNOWN INDICATION
     Dosage: 5 MG, ORAL
     Route: 048

REACTIONS (1)
  - TARDIVE DYSKINESIA [None]
